FAERS Safety Report 6524110-8 (Version None)
Quarter: 2009Q4

REPORT INFORMATION
  Report Type: 
  Country: None (occurrence: None)
  Receive Date: 20091230
  Receipt Date: 20091230
  Transmission Date: 20100525
  Serious: Yes (Life-Threatening, Hospitalization, Disabling)
  Sender: FDA-Public Use
  Company Number: None

PATIENT
  Sex: Female
  Weight: 61.2356 kg

DRUGS (4)
  1. ASACOL [Suspect]
     Indication: COLITIS ULCERATIVE
     Dosage: 400MG ONCE A DAY 3 PILLS
     Dates: start: 20070302, end: 20080720
  2. ASACOL [Suspect]
     Indication: RENAL FAILURE ACUTE
     Dosage: 400MG ONCE A DAY 3 PILLS
     Dates: start: 20070302, end: 20080720
  3. ASACOL [Suspect]
     Indication: COLITIS ULCERATIVE
     Dosage: 400MG ONCE A DAY 3 PILLS
     Dates: start: 20090424, end: 20091103
  4. ASACOL [Suspect]
     Indication: RENAL FAILURE ACUTE
     Dosage: 400MG ONCE A DAY 3 PILLS
     Dates: start: 20090424, end: 20091103

REACTIONS (1)
  - INCORRECT DOSE ADMINISTERED [None]
